FAERS Safety Report 17287024 (Version 1)
Quarter: 2020Q1

REPORT INFORMATION
  Report Type: Spontaneous
  Country: ES (occurrence: ES)
  Receive Date: 20200120
  Receipt Date: 20200120
  Transmission Date: 20200409
  Serious: Yes (Life-Threatening, Hospitalization)
  Sender: FDA-Public Use
  Company Number: ES-TEVA-2020-ES-1169793

PATIENT
  Age: 32 Year
  Sex: Female

DRUGS (3)
  1. PREDNISONA (886A) [Suspect]
     Active Substance: PREDNISONE
     Indication: RENAL TRANSPLANT
     Dosage: 5 MG
     Route: 048
     Dates: start: 20161010
  2. MYFORTIC [Interacting]
     Active Substance: MYCOPHENOLATE SODIUM
     Indication: RENAL TRANSPLANT
     Dosage: 540 MG
     Route: 048
     Dates: start: 20161010
  3. ENVARSUS XR [Interacting]
     Active Substance: TACROLIMUS
     Indication: RENAL TRANSPLANT
     Dosage: 4 MILLIGRAM DAILY;
     Route: 048
     Dates: start: 20161010

REACTIONS (2)
  - Urosepsis [Recovered/Resolved]
  - Drug interaction [Unknown]

NARRATIVE: CASE EVENT DATE: 20190812
